FAERS Safety Report 10311018 (Version 1)
Quarter: 2014Q3

REPORT INFORMATION
  Report Type: Spontaneous
  Country: FR (occurrence: None)
  Receive Date: 20140714
  Receipt Date: 20140714
  Transmission Date: 20150326
  Serious: Yes (Life-Threatening, Other)
  Sender: FDA-Public Use
  Company Number: 2014CVI00015

PATIENT
  Age: 51 Year
  Sex: Male
  Weight: 88.9 kg

DRUGS (4)
  1. VECURONIUM BROMIDE. [Concomitant]
     Active Substance: VECURONIUM BROMIDE
  2. CEFUROXIME. [Suspect]
     Active Substance: CEFUROXIME
     Indication: INFECTION PROPHYLAXIS
     Dosage: UNK, INTRAVENOUS?
     Route: 042
     Dates: start: 19900205, end: 19900205
  3. FENTANYL CITRATE. [Concomitant]
     Active Substance: FENTANYL CITRATE
  4. FLUNITRAZEPAM [Concomitant]
     Active Substance: FLUNITRAZEPAM

REACTIONS (8)
  - Necrosis ischaemic [None]
  - Anaphylactic shock [None]
  - Angioedema [None]
  - Rhabdomyolysis [None]
  - Renal failure [None]
  - Ventricular fibrillation [None]
  - Cardiac arrest [None]
  - Acidosis [None]

NARRATIVE: CASE EVENT DATE: 19900205
